FAERS Safety Report 9664315 (Version 1)
Quarter: 2013Q4

REPORT INFORMATION
  Report Type: Report from Study
  Country: US (occurrence: US)
  Receive Date: 20131101
  Receipt Date: 20131101
  Transmission Date: 20140711
  Serious: Yes (Other)
  Sender: FDA-Public Use
  Company Number: US-ACTELION-A-US2013-90330

PATIENT
  Age: 77 Year
  Sex: Male

DRUGS (17)
  1. TRACLEER [Suspect]
     Indication: PULMONARY ARTERIAL HYPERTENSION
     Dosage: 125 MG, BID
     Route: 048
     Dates: start: 2007
  2. TRACLEER [Suspect]
     Dosage: UNK
     Route: 048
     Dates: start: 2007, end: 2007
  3. AMIODARONE [Concomitant]
     Dosage: 200 MG, 5 TIMES WEEKLY
     Dates: start: 2010
  4. POTASSIUM [Concomitant]
     Dosage: 10 MEQ, QD
     Dates: start: 2010
  5. LEVOTHYROXINE [Concomitant]
     Dosage: 25 MCG, QD
     Dates: start: 2012
  6. ACARBOSE [Concomitant]
     Dosage: 50 MG, TID
     Dates: start: 2012
  7. LASIX [Concomitant]
     Dosage: 40 MG, BID
     Dates: start: 2003
  8. ASTEPRO [Concomitant]
     Dosage: 1 SPRAY, QD
     Dates: start: 2011
  9. FLOMAX [Concomitant]
     Dosage: 0.4 MG, QD
     Dates: start: 2011
  10. LISINOPRIL [Concomitant]
     Dosage: 10 MG, QD
     Dates: start: 2008
  11. COREG [Concomitant]
     Dosage: 25 MG, BID
     Dates: start: 2010
  12. GLIPIZIDE [Concomitant]
     Dosage: 2.5 MG, QD
     Dates: start: 2010
  13. LIPITOR [Concomitant]
     Dosage: 40 MG, QD
     Dates: start: 2010
  14. COUMADIN [Concomitant]
     Dosage: 5 MG, QD
     Dates: start: 2008
  15. OMEPRAZOLE [Concomitant]
     Dosage: 20 MG, 4 TIMES WEEKLY
     Dates: start: 2010
  16. IRON [Concomitant]
     Dosage: 1 U, BID
     Dates: start: 2010
  17. ASPIRIN [Concomitant]
     Dosage: 81 MG, QD
     Dates: start: 2008

REACTIONS (2)
  - Visual acuity reduced [Recovering/Resolving]
  - Cataract operation [Recovering/Resolving]
